FAERS Safety Report 6654557-0 (Version None)
Quarter: 2010Q1

REPORT INFORMATION
  Report Type: 
  Country: None (occurrence: None)
  Receive Date: 20100326
  Receipt Date: 20100315
  Transmission Date: 20100710
  Serious: Yes (Other)
  Sender: FDA-Public Use
  Company Number: BR-PFIZER INC-2010033118

PATIENT
  Age: 91 Year
  Sex: Male
  Weight: 67 kg

DRUGS (5)
  1. XALATAN [Suspect]
     Indication: GLAUCOMA
     Dosage: 1 GTT, 1X/DAY
     Route: 047
     Dates: start: 20080101
  2. TIMOLOL [Suspect]
     Indication: GLAUCOMA
     Dosage: UNK
     Dates: start: 20080101
  3. VYTORIN [Concomitant]
     Dosage: 10/20MG
  4. LISINOPRIL [Concomitant]
     Dosage: 5 MG, UNK
     Dates: start: 20050101
  5. SOMALGIN [Concomitant]
     Dosage: UNK
     Dates: start: 20000101

REACTIONS (6)
  - BLINDNESS [None]
  - CEREBROVASCULAR ACCIDENT [None]
  - EYE PAIN [None]
  - GLAUCOMA [None]
  - INTRAOCULAR PRESSURE INCREASED [None]
  - NEUROPATHY PERIPHERAL [None]
